FAERS Safety Report 24448103 (Version 1)
Quarter: 2024Q4

REPORT INFORMATION
  Report Type: Spontaneous
  Country: GB (occurrence: GB)
  Receive Date: 20241016
  Receipt Date: 20241016
  Transmission Date: 20250115
  Serious: Yes (Other)
  Sender: TEVA
  Company Number: GB-TILLOMEDPR-2024-EPL-005322

PATIENT
  Age: 48 Year
  Sex: Female

DRUGS (2)
  1. TAMOXIFEN [Suspect]
     Active Substance: TAMOXIFEN
     Indication: Hormone therapy
     Dosage: STARTED 1 YEAR AGO,
     Route: 065
  2. RAMIPRIL [Suspect]
     Active Substance: RAMIPRIL
     Indication: Product used for unknown indication
     Dosage: 2.5 MILLIGRAM AND HAVE DONE FOR 3 MONTHS
     Route: 065

REACTIONS (5)
  - Breast haemorrhage [Unknown]
  - Breast pain [Unknown]
  - Drug ineffective [Unknown]
  - Insomnia [Unknown]
  - Restless legs syndrome [Unknown]
